FAERS Safety Report 6706696-3 (Version None)
Quarter: 2010Q2

REPORT INFORMATION
  Report Type: 
  Country: None (occurrence: None)
  Receive Date: 20100503
  Receipt Date: 20100421
  Transmission Date: 20101027
  Serious: Yes (Other)
  Sender: FDA-Public Use
  Company Number: US-ELI_LILLY_AND_COMPANY-US201004007298

PATIENT
  Sex: Female

DRUGS (5)
  1. EVISTA [Suspect]
     Dosage: 60 MG, DAILY (1/D)
     Dates: start: 20020101
  2. POTASSIUM CHLORIDE [Concomitant]
  3. NEXIUM [Concomitant]
  4. FLORINEF [Concomitant]
     Indication: BLOOD PRESSURE
  5. ZYRTEC-D 12 HOUR [Concomitant]
     Indication: HYPERSENSITIVITY

REACTIONS (5)
  - ACTIVITIES OF DAILY LIVING IMPAIRED [None]
  - BALANCE DISORDER [None]
  - HYPOTENSION [None]
  - MOBILITY DECREASED [None]
  - NERVOUS SYSTEM DISORDER [None]
